FAERS Safety Report 13734966 (Version 4)
Quarter: 2017Q3

REPORT INFORMATION
  Report Type: Report from Study
  Country: None (occurrence: GR)
  Receive Date: 20170710
  Receipt Date: 20170823
  Transmission Date: 20171127
  Serious: Yes (Hospitalization)
  Sender: FDA-Public Use
  Company Number: GR-ABBVIE-17K-066-2032489-00

PATIENT
  Age: 75 Year
  Sex: Female

DRUGS (4)
  1. RIVETAL [Concomitant]
     Indication: PRODUCT USED FOR UNKNOWN INDICATION
  2. BELIFAX [Concomitant]
     Indication: PRODUCT USED FOR UNKNOWN INDICATION
  3. DUODOPA [Suspect]
     Active Substance: CARBIDOPA\LEVODOPA
     Indication: PARKINSON^S DISEASE
     Dosage: MORNING DOSE:8.5ML; CONTINUOUS RATE: 1.3ML/H; EXTRA DOSE: 1.5ML
     Route: 050
     Dates: start: 2010, end: 20170731
  4. FILICINE [Concomitant]
     Indication: ANAEMIA

REACTIONS (4)
  - Relapsing fever [Recovered/Resolved]
  - Relapsing fever [Recovering/Resolving]
  - Respiratory tract infection [Recovering/Resolving]
  - Respiratory tract infection [Recovered/Resolved]

NARRATIVE: CASE EVENT DATE: 20170704
